FAERS Safety Report 7247748-1 (Version None)
Quarter: 2011Q1

REPORT INFORMATION
  Report Type: 
  Country: None (occurrence: None)
  Receive Date: 20110127
  Receipt Date: 20110121
  Transmission Date: 20110831
  Serious: Yes (Hospitalization, Disabling)
  Sender: FDA-Public Use
  Company Number: US-BAYER-200924709NA

PATIENT
  Sex: Male
  Weight: 75.864 kg

DRUGS (38)
  1. FLUOROURACIL [Suspect]
     Indication: COLORECTAL CANCER METASTATIC
     Route: 040
     Dates: start: 20090526, end: 20090526
  2. FLUOROURACIL [Suspect]
     Route: 040
     Dates: start: 20090707, end: 20090707
  3. ASPIRIN [Concomitant]
     Indication: VITAMIN SUPPLEMENTATION
     Dates: start: 20070101
  4. TAMSULOSIN HCL [Concomitant]
     Dates: start: 20080510, end: 20091228
  5. AMLODIPINE [Concomitant]
     Indication: HYPERTENSION
     Dates: start: 20070101
  6. SIMVASTATIN [Concomitant]
     Dates: start: 20090519, end: 20091228
  7. DEXAMETHASONE [Concomitant]
     Indication: THROMBOSIS PROPHYLAXIS
     Dosage: 10 MG (DAILY DOSE), ,
     Dates: start: 20090526, end: 20090526
  8. ONDANSETRON [Concomitant]
     Dosage: 12 MG (DAILY DOSE), ,
     Dates: start: 20090609, end: 20090609
  9. FLUOROURACIL [Suspect]
     Route: 042
     Dates: start: 20090526, end: 20090528
  10. METFORMIN HCL [Concomitant]
     Indication: TYPE 2 DIABETES MELLITUS
     Dates: start: 20070101
  11. DEXAMETHASONE [Concomitant]
     Dosage: 10 MG (DAILY DOSE), ,
     Dates: start: 20090707, end: 20090707
  12. ONDANSETRON [Concomitant]
     Dosage: 12 MG (DAILY DOSE), ,
     Dates: start: 20090707, end: 20090707
  13. LEUCOVORIN CALCIUM [Suspect]
     Indication: COLORECTAL CANCER METASTATIC
     Route: 042
     Dates: start: 20090526, end: 20090526
  14. LEUCOVORIN CALCIUM [Suspect]
     Route: 042
     Dates: start: 20090609, end: 20090609
  15. LISINOPRIL [Concomitant]
     Dates: start: 20080519, end: 20091228
  16. OXALIPLATIN [Suspect]
     Route: 042
     Dates: start: 20090609, end: 20090609
  17. LEUCOVORIN CALCIUM [Suspect]
     Route: 042
     Dates: start: 20090707, end: 20090707
  18. ACETAMINOPHEN [Concomitant]
     Indication: PAIN
     Dates: start: 20090526, end: 20091228
  19. SORAFENIB (RAF KINASE INHIBITOR) [Suspect]
     Indication: COLORECTAL CANCER METASTATIC
     Route: 048
     Dates: start: 20090526, end: 20090609
  20. OXALIPLATIN [Suspect]
     Indication: COLORECTAL CANCER METASTATIC
     Route: 042
     Dates: start: 20090526, end: 20090526
  21. OXALIPLATIN [Suspect]
     Route: 042
     Dates: start: 20090707, end: 20090707
  22. FLUOROURACIL [Suspect]
     Route: 042
     Dates: start: 20090707, end: 20090709
  23. ATENOLOL [Concomitant]
     Indication: HYPERTENSION
     Dates: start: 20070101
  24. ATENOLOL [Concomitant]
     Dates: start: 20080519, end: 20091228
  25. ONDANSETRON [Concomitant]
     Indication: PREMEDICATION
     Dosage: 12 MG (DAILY DOSE), ,
     Dates: start: 20090526, end: 20090526
  26. HEPARIN [Concomitant]
     Indication: THROMBOSIS PROPHYLAXIS
     Dates: start: 20090623, end: 20090623
  27. ASPIRIN [Concomitant]
     Indication: ISCHAEMIC HEART DISEASE PROPHYLAXIS
     Dates: start: 20090519, end: 20091228
  28. METFORMIN HCL [Concomitant]
     Dates: start: 20080519, end: 20091228
  29. SIMVASTATIN [Concomitant]
     Indication: HYPERLIPIDAEMIA
     Dates: start: 20070101
  30. ASCORBIC ACID [Concomitant]
     Indication: VITAMIN SUPPLEMENTATION
     Dates: start: 20090519, end: 20091228
  31. DEXAMETHASONE [Concomitant]
     Dosage: 10 MG (DAILY DOSE), ,
     Dates: start: 20090609, end: 20090609
  32. SORAFENIB (RAF KINASE INHIBITOR) [Suspect]
     Route: 048
     Dates: start: 20090609, end: 20090615
  33. TAMSULOSIN HCL [Concomitant]
     Indication: BENIGN PROSTATIC HYPERPLASIA
     Dates: start: 20070101
  34. LISINOPRIL [Concomitant]
     Indication: HYPERTENSION
     Dates: start: 20070101
  35. AMLODIPINE [Concomitant]
     Dates: start: 20080519, end: 20091228
  36. FLUOROURACIL [Suspect]
     Route: 040
     Dates: start: 20090609, end: 20090609
  37. FLUOROURACIL [Suspect]
     Route: 042
     Dates: start: 20090609, end: 20090611
  38. ASCORBIC ACID [Concomitant]
     Indication: MEDICAL DIET

REACTIONS (4)
  - CELLULITIS [None]
  - SKIN ULCER [None]
  - DIABETIC FOOT INFECTION [None]
  - OSTEOMYELITIS [None]
